FAERS Safety Report 4314201-4 (Version None)
Quarter: 2004Q1

REPORT INFORMATION
  Report Type: 
  Country: None (occurrence: None)
  Receive Date: 20040308
  Receipt Date: 20040308
  Transmission Date: 20041129
  Serious: Yes (Hospitalization)
  Sender: FDA-Public Use
  Company Number: None

PATIENT
  Age: 71 Year
  Sex: Male
  Weight: 109 kg

DRUGS (11)
  1. FLUOROURACIL [Suspect]
     Indication: COLON CANCER
     Dosage: 1150 MG WEEKLY INTRAVENOUS
     Route: 042
     Dates: start: 20030911, end: 20030911
  2. ACETAMINOPHEN [Concomitant]
  3. ALBUTEROL [Concomitant]
  4. CALCIUM CARBONATE [Concomitant]
  5. CHOLESTYRAMINE [Concomitant]
  6. GOLYTELY [Concomitant]
  7. IPRATROPIUM BROMIDE [Concomitant]
  8. LORATADINE [Concomitant]
  9. FLAGYL [Concomitant]
  10. RABEPRAZOLE SODIUM [Concomitant]
  11. SERTRALINE HCL [Concomitant]

REACTIONS (6)
  - ABDOMINAL PAIN LOWER [None]
  - ABNORMAL FAECES [None]
  - CHILLS [None]
  - DIARRHOEA [None]
  - FLATULENCE [None]
  - PYREXIA [None]
